FAERS Safety Report 4278359-8 (Version None)
Quarter: 2004Q1

REPORT INFORMATION
  Report Type: 
  Country: None (occurrence: None)
  Receive Date: 20040121
  Receipt Date: 20040121
  Transmission Date: 20041129
  Serious: Yes (Life-Threatening)
  Sender: FDA-Public Use
  Company Number: None

PATIENT
  Age: 53 Year
  Sex: Female
  Weight: 53.978 kg

DRUGS (2)
  1. PAXIL [Suspect]
     Indication: DEPRESSION
     Dosage: 25 MG ONCE A DAY
     Dates: start: 19950101, end: 20030715
  2. PAXIL [Suspect]
     Indication: PANIC ATTACK
     Dosage: 25 MG ONCE A DAY
     Dates: start: 19950101, end: 20030715

REACTIONS (7)
  - AGGRESSION [None]
  - AGITATION [None]
  - CRYING [None]
  - DEPRESSION [None]
  - DISTURBANCE IN ATTENTION [None]
  - LOSS OF EMPLOYMENT [None]
  - SUICIDAL IDEATION [None]
